FAERS Safety Report 4705998-X (Version None)
Quarter: 2005Q2

REPORT INFORMATION
  Report Type: 
  Country: None (occurrence: None)
  Receive Date: 20050629
  Receipt Date: 20050617
  Transmission Date: 20051028
  Serious: Yes (Hospitalization)
  Sender: FDA-Public Use
  Company Number: 2005BI010254

PATIENT
  Age: 51 Year
  Sex: Female

DRUGS (12)
  1. AVONEX [Suspect]
     Indication: MULTIPLE SCLEROSIS
     Dosage: 30 UG; QW;IM
     Route: 030
     Dates: start: 20040204
  2. AMANTADINE [Concomitant]
  3. SYNTHROID [Concomitant]
  4. IBUPROFEN [Concomitant]
  5. BACLOFEN [Concomitant]
  6. CALCIUM GLUCONATE [Concomitant]
  7. NEURONTIN [Concomitant]
  8. HYZAAR [Concomitant]
  9. LOVASTATIN [Concomitant]
  10. ZOLOFT [Concomitant]
  11. NOVANTRONE [Concomitant]
  12. CLONAZEPAM [Concomitant]

REACTIONS (1)
  - CHOLELITHIASIS [None]
